FAERS Safety Report 6308556-9 (Version None)
Quarter: 2009Q3

REPORT INFORMATION
  Report Type: 
  Country: None (occurrence: None)
  Receive Date: 20090813
  Receipt Date: 20090805
  Transmission Date: 20100115
  Serious: Yes (Hospitalization)
  Sender: FDA-Public Use
  Company Number: US-ELI_LILLY_AND_COMPANY-US200908001240

PATIENT
  Sex: Female

DRUGS (9)
  1. FORTEO [Suspect]
     Dates: start: 20081112, end: 20090525
  2. NEXIUM [Concomitant]
  3. DIOVAN [Concomitant]
  4. LIPITOR [Concomitant]
  5. CARDIZEM [Concomitant]
  6. MULTI-VITAMIN [Concomitant]
  7. CALCIUM [Concomitant]
  8. LOVAZA [Concomitant]
  9. METFORMIN HCL [Concomitant]

REACTIONS (12)
  - ANGIOPLASTY [None]
  - ARTHRALGIA [None]
  - ASTHENIA [None]
  - BONE PAIN [None]
  - CONSTIPATION [None]
  - DYSSTASIA [None]
  - EAR DISCOMFORT [None]
  - FAECES DISCOLOURED [None]
  - HYPOTENSION [None]
  - INSOMNIA [None]
  - PAIN IN EXTREMITY [None]
  - PALPITATIONS [None]
